FAERS Safety Report 5045570-8 (Version None)
Quarter: 2006Q2

REPORT INFORMATION
  Report Type: 
  Country: None (occurrence: None)
  Receive Date: 20060601
  Receipt Date: 20060404
  Transmission Date: 20061013
  Serious: No
  Sender: FDA-Public Use
  Company Number: 2006-BP-01397BP

PATIENT
  Age: 71 Year
  Sex: Female

DRUGS (9)
  1. SPIRIVA [Suspect]
     Indication: CHRONIC OBSTRUCTIVE PULMONARY DISEASE
     Dosage: 2 PUF (18 MCG, 2 PUFFS DAILY 1 CAPSULE), IH
     Route: 055
  2. SEREVENT [Concomitant]
  3. SYNTHROID [Concomitant]
  4. DILTIAZEM (CARDIZEM) (DILTIAZEM) [Concomitant]
  5. ZOCOR [Concomitant]
  6. LORAZEPAM [Concomitant]
  7. SINGULAIR [Concomitant]
  8. ACTONEL [Concomitant]
  9. NASONEX [Concomitant]

REACTIONS (1)
  - SENSATION OF FOREIGN BODY [None]
